FAERS Safety Report 6819887-8 (Version None)
Quarter: 2010Q3

REPORT INFORMATION
  Report Type: 
  Country: None (occurrence: None)
  Receive Date: 20100707
  Receipt Date: 20100625
  Transmission Date: 20110219
  Serious: Yes (Hospitalization)
  Sender: FDA-Public Use
  Company Number: JP-ROCHE-705862

PATIENT
  Sex: Female
  Weight: 38 kg

DRUGS (15)
  1. ACTEMRA [Suspect]
     Indication: RHEUMATOID ARTHRITIS
     Route: 041
     Dates: start: 20100225, end: 20100421
  2. MEDROL [Concomitant]
     Route: 048
     Dates: end: 20100515
  3. ALOSITOL [Concomitant]
     Route: 048
     Dates: end: 20100515
  4. CONIEL [Concomitant]
     Route: 048
     Dates: end: 20100515
  5. TAKEPRON [Concomitant]
     Dosage: REPORTED DOSE FORM: SUSTAINED-RELEASE TABLET
     Route: 048
     Dates: end: 20100515
  6. CLINORIL [Concomitant]
     Route: 048
     Dates: end: 20100515
  7. MUCOSTA [Concomitant]
     Route: 048
     Dates: end: 20100515
  8. CALCIUM LACTATE [Concomitant]
     Dosage: REPORTED DOSE FORM: POWDERED MEDICINE
     Route: 048
     Dates: end: 20100515
  9. METHYCOBAL [Concomitant]
     Route: 048
     Dates: end: 20100515
  10. BAKUMONDO-TO [Concomitant]
     Dosage: REPORTED FORM: GRANULATED POWDER
     Route: 048
     Dates: end: 20100515
  11. ALLOID G [Concomitant]
     Dosage: REPORTED FORM: PER ORAL LIQUID PREPARATION
     Route: 048
     Dates: end: 20100515
  12. BONALON [Concomitant]
     Dosage: REPORTED DRUG: BONALON 35 MG
     Route: 048
     Dates: end: 20100515
  13. HALCION [Concomitant]
     Route: 048
     Dates: end: 20100515
  14. ADOAIR [Concomitant]
     Dosage: REPORTED FORM: RESPIRATORY TONIC, STRENGTH: RESPIRATORY (INHALATION)
     Route: 055
     Dates: end: 20100515
  15. OLMETEC [Concomitant]
     Route: 048
     Dates: end: 20100515

REACTIONS (1)
  - APPENDICITIS [None]
